FAERS Safety Report 19497546 (Version 2)
Quarter: 2021Q3

REPORT INFORMATION
  Report Type: Report from Study
  Country: CA (occurrence: CA)
  Receive Date: 20210706
  Receipt Date: 20210709
  Transmission Date: 20211014
  Serious: Yes (Other)
  Sender: FDA-Public Use
  Company Number: CA-TAKEDA-CA202002528

PATIENT
  Age: 49 Year
  Sex: Female

DRUGS (49)
  1. LANADELUMAB [Suspect]
     Active Substance: LANADELUMAB
     Dosage: UNK UNK, Q2WEEKS
     Route: 065
     Dates: start: 20180119
  2. FIRAZYR [Suspect]
     Active Substance: ICATIBANT ACETATE
     Dosage: UNK
     Route: 065
     Dates: start: 20200607
  3. LANADELUMAB [Suspect]
     Active Substance: LANADELUMAB
     Dosage: 300 MILLIGRAM, 1X/2WKS
     Route: 058
     Dates: start: 20200320
  4. LANADELUMAB [Suspect]
     Active Substance: LANADELUMAB
     Dosage: 300 MILLIGRAM, 1X/2WKS
     Route: 058
     Dates: start: 20200124
  5. FIRAZYR [Suspect]
     Active Substance: ICATIBANT ACETATE
     Dosage: 30 MILLIGRAM/3ML, AS REQ^D
     Route: 065
     Dates: start: 20200202
  6. FIRAZYR [Suspect]
     Active Substance: ICATIBANT ACETATE
     Dosage: 30 MILLIGRAM/3ML, AS REQ^D
     Route: 065
     Dates: start: 20200209
  7. FIRAZYR [Suspect]
     Active Substance: ICATIBANT ACETATE
     Dosage: 30 MILLIGRAM/3ML, AS REQ^D
     Route: 065
     Dates: start: 20200210
  8. FIRAZYR [Suspect]
     Active Substance: ICATIBANT ACETATE
     Dosage: 30 MILLIGRAM/3ML, AS REQ^D
     Route: 065
     Dates: start: 20200211
  9. PFIZER?BIONTECH COVID?19 VACCINE [Suspect]
     Active Substance: TOZINAMERAN
     Indication: PRODUCT USED FOR UNKNOWN INDICATION
     Dosage: UNK
     Route: 065
     Dates: start: 20210624
  10. FIRAZYR [Suspect]
     Active Substance: ICATIBANT ACETATE
     Indication: HEREDITARY ANGIOEDEMA
     Dosage: 30 MILLIGRAM/3ML, AS REQ^D
     Route: 065
     Dates: start: 20181119
  11. FIRAZYR [Suspect]
     Active Substance: ICATIBANT ACETATE
     Dosage: 30 MILLIGRAM/3ML, AS REQ^D
     Route: 065
     Dates: start: 20181119
  12. FIRAZYR [Suspect]
     Active Substance: ICATIBANT ACETATE
     Dosage: 30 MILLIGRAM/3ML, AS REQ^D
     Route: 065
     Dates: start: 20200210
  13. FIRAZYR [Suspect]
     Active Substance: ICATIBANT ACETATE
     Dosage: 30 MILLIGRAM/3ML, AS REQ^D
     Route: 065
     Dates: start: 20200211
  14. FIRAZYR [Suspect]
     Active Substance: ICATIBANT ACETATE
     Dosage: UNK
     Route: 065
     Dates: start: 20200607
  15. FIRAZYR [Suspect]
     Active Substance: ICATIBANT ACETATE
     Dosage: UNK
     Route: 065
     Dates: start: 20200610
  16. FIRAZYR [Suspect]
     Active Substance: ICATIBANT ACETATE
     Dosage: 30 MILLIGRAM/3ML, AS REQ^D
     Route: 065
     Dates: start: 20181119
  17. FIRAZYR [Suspect]
     Active Substance: ICATIBANT ACETATE
     Dosage: UNK
     Route: 065
     Dates: start: 20201210
  18. ERYTHROMYCIN. [Concomitant]
     Active Substance: ERYTHROMYCIN
     Indication: PRODUCT USED FOR UNKNOWN INDICATION
     Dosage: UNK
     Route: 065
  19. LANADELUMAB [Suspect]
     Active Substance: LANADELUMAB
     Dosage: 300 MILLIGRAM, 1X/2WKS
     Route: 058
     Dates: start: 20181119
  20. FIRAZYR [Suspect]
     Active Substance: ICATIBANT ACETATE
     Dosage: 30 MILLIGRAM/3ML, AS REQ^D
     Route: 065
     Dates: start: 20200227
  21. FIRAZYR [Suspect]
     Active Substance: ICATIBANT ACETATE
     Dosage: UNK
     Route: 065
     Dates: start: 20200624
  22. FIRAZYR [Suspect]
     Active Substance: ICATIBANT ACETATE
     Dosage: 30 MILLIGRAM/3ML, AS REQ^D
     Route: 065
     Dates: start: 20181119
  23. FIRAZYR [Suspect]
     Active Substance: ICATIBANT ACETATE
     Dosage: UNK
     Route: 065
     Dates: start: 20201205
  24. FIRAZYR [Suspect]
     Active Substance: ICATIBANT ACETATE
     Dosage: 30 MILLIGRAM/3ML
     Route: 065
     Dates: start: 20181119
  25. EPIPEN [Concomitant]
     Active Substance: EPINEPHRINE
     Indication: PRODUCT USED FOR UNKNOWN INDICATION
     Dosage: UNK, PRN
     Route: 065
  26. PENICILLIN [PENICILLIN NOS] [Concomitant]
     Active Substance: PENICILLIN
     Indication: PRODUCT USED FOR UNKNOWN INDICATION
     Dosage: UNK
     Route: 065
  27. TETRACYCLINE [Concomitant]
     Active Substance: TETRACYCLINE
     Indication: PRODUCT USED FOR UNKNOWN INDICATION
     Dosage: UNK
     Route: 065
  28. FIRAZYR [Suspect]
     Active Substance: ICATIBANT ACETATE
     Indication: HEREDITARY ANGIOEDEMA
     Dosage: 30 MILLIGRAM/3ML, AS REQ^D
     Route: 065
     Dates: start: 20181119
  29. FIRAZYR [Suspect]
     Active Substance: ICATIBANT ACETATE
     Dosage: 30 MILLIGRAM/3ML, AS REQ^D
     Route: 065
     Dates: start: 20200202
  30. FIRAZYR [Suspect]
     Active Substance: ICATIBANT ACETATE
     Dosage: UNK
     Route: 065
     Dates: start: 20201205
  31. TYLENOL [Concomitant]
     Active Substance: ACETAMINOPHEN
     Indication: PRODUCT USED FOR UNKNOWN INDICATION
     Dosage: UNK, PRN
     Route: 065
  32. RELPAX [Concomitant]
     Active Substance: ELETRIPTAN HYDROBROMIDE
     Indication: MIGRAINE
     Dosage: 40?60 MILLIGRAM
     Route: 065
  33. FIRAZYR [Suspect]
     Active Substance: ICATIBANT ACETATE
     Dosage: UNK
     Route: 065
     Dates: start: 20200624
  34. FIRAZYR [Suspect]
     Active Substance: ICATIBANT ACETATE
     Dosage: 30 MILLIGRAM/3ML, AS REQ^D
     Route: 065
     Dates: start: 20181119
  35. FIRAZYR [Suspect]
     Active Substance: ICATIBANT ACETATE
     Dosage: UNK
     Route: 065
     Dates: start: 20201211
  36. REACTINE ALLERGY + SINUS [Concomitant]
     Active Substance: CETIRIZINE HYDROCHLORIDE\PSEUDOEPHEDRINE HYDROCHLORIDE
     Indication: PRODUCT USED FOR UNKNOWN INDICATION
     Dosage: AS NEEDED
     Route: 065
  37. LANADELUMAB [Suspect]
     Active Substance: LANADELUMAB
     Dosage: 300 MILLIGRAM, 1X/2WKS
     Route: 058
     Dates: start: 20200306
  38. FIRAZYR [Suspect]
     Active Substance: ICATIBANT ACETATE
     Dosage: 30 MILLIGRAM/3ML, AS REQ^D
     Route: 065
     Dates: start: 20200209
  39. FIRAZYR [Suspect]
     Active Substance: ICATIBANT ACETATE
     Dosage: UNK
     Route: 065
     Dates: start: 20200610
  40. FIRAZYR [Suspect]
     Active Substance: ICATIBANT ACETATE
     Dosage: UNK
     Route: 065
     Dates: start: 20201210
  41. FIRAZYR [Suspect]
     Active Substance: ICATIBANT ACETATE
     Dosage: 30 MILLIGRAM/3ML
     Route: 065
     Dates: start: 20181119
  42. FIRAZYR [Suspect]
     Active Substance: ICATIBANT ACETATE
     Dosage: UNK
     Route: 065
     Dates: start: 20201211
  43. BERINERT [Concomitant]
     Active Substance: HUMAN C1-ESTERASE INHIBITOR
     Indication: PRODUCT USED FOR UNKNOWN INDICATION
     Dosage: 3000 INTERNATIONAL UNIT, EVERY 3 DAYS
     Route: 065
     Dates: start: 20180921
  44. LANADELUMAB [Suspect]
     Active Substance: LANADELUMAB
     Indication: HEREDITARY ANGIOEDEMA WITH C1 ESTERASE INHIBITOR DEFICIENCY
     Dosage: 300 MILLIGRAM, 1X/2WKS
     Route: 058
     Dates: start: 20200124
  45. LANADELUMAB [Suspect]
     Active Substance: LANADELUMAB
     Dosage: 300 MILLIGRAM/2 ML, Q2WEEKS
     Route: 058
     Dates: start: 20200124
  46. FIRAZYR [Suspect]
     Active Substance: ICATIBANT ACETATE
     Dosage: 30 MILLIGRAM/3ML, AS REQ^D
     Route: 065
     Dates: start: 20181119
  47. FIRAZYR [Suspect]
     Active Substance: ICATIBANT ACETATE
     Dosage: 30 MILLIGRAM/3ML, AS REQ^D
     Route: 065
     Dates: start: 20200227
  48. FIRAZYR [Suspect]
     Active Substance: ICATIBANT ACETATE
     Dosage: 30 MILLIGRAM/3ML, AS REQ^D
     Route: 065
     Dates: start: 20181119
  49. ADVIL [Concomitant]
     Active Substance: IBUPROFEN
     Indication: PRODUCT USED FOR UNKNOWN INDICATION
     Dosage: UNK, PRN
     Route: 065

REACTIONS (29)
  - Eye disorder [Unknown]
  - Drug ineffective [Unknown]
  - Infusion site pain [Unknown]
  - Nasopharyngitis [Unknown]
  - Injection site haemorrhage [Unknown]
  - Nausea [Recovered/Resolved]
  - Vomiting [Unknown]
  - Upper-airway cough syndrome [Unknown]
  - Pyrexia [Unknown]
  - Product administration interrupted [Unknown]
  - Injection site urticaria [Unknown]
  - Lacrimation increased [Unknown]
  - Weight decreased [Unknown]
  - Nervousness [Unknown]
  - Mental disorder [Unknown]
  - Rhinorrhoea [Unknown]
  - Injection site erythema [Unknown]
  - Retching [Unknown]
  - Influenza like illness [Unknown]
  - Complex regional pain syndrome [Not Recovered/Not Resolved]
  - Hereditary angioedema [Unknown]
  - Limb injury [Unknown]
  - Cough [Unknown]
  - Stress [Unknown]
  - Injection site rash [Unknown]
  - Depression [Unknown]
  - Needle issue [Recovered/Resolved]
  - Illness [Unknown]
  - Migraine [Not Recovered/Not Resolved]

NARRATIVE: CASE EVENT DATE: 202001
